FAERS Safety Report 16246804 (Version 1)
Quarter: 2019Q2

REPORT INFORMATION
  Report Type: Spontaneous
  Country: US (occurrence: US)
  Receive Date: 20190427
  Receipt Date: 20190427
  Transmission Date: 20190711
  Serious: Yes (Other)
  Sender: FDA-Public Use
  Company Number: US-AXELLIA-002416

PATIENT
  Age: 61 Year
  Sex: Female

DRUGS (3)
  1. VANCOMYCIN [Suspect]
     Active Substance: VANCOMYCIN
     Indication: DIVERTICULITIS
  2. AMPHOTERICIN B. [Suspect]
     Active Substance: AMPHOTERICIN B
     Indication: DIVERTICULITIS
  3. MEROPENEM. [Suspect]
     Active Substance: MEROPENEM
     Indication: DIVERTICULITIS

REACTIONS (2)
  - Encephalopathy [Recovering/Resolving]
  - Leukocytosis [Unknown]
